FAERS Safety Report 7148758-5 (Version None)
Quarter: 2010Q4

REPORT INFORMATION
  Report Type: 
  Country: None (occurrence: None)
  Receive Date: 20101209
  Receipt Date: 20101129
  Transmission Date: 20110411
  Serious: Yes (Other)
  Sender: FDA-Public Use
  Company Number: KZ-ACTELION-A-CH2010-42157

PATIENT
  Age: 20 Year
  Sex: Female

DRUGS (2)
  1. TRACLEER [Suspect]
     Indication: PULMONARY ARTERIAL HYPERTENSION
     Dosage: 125 MG, UNK
     Route: 048
     Dates: start: 20101124, end: 20101129
  2. ZINACEF [Concomitant]
     Dosage: UNK

REACTIONS (1)
  - BODY TEMPERATURE INCREASED [None]
